FAERS Safety Report 7090263-9 (Version None)
Quarter: 2010Q4

REPORT INFORMATION
  Report Type: 
  Country: None (occurrence: None)
  Receive Date: 20101109
  Receipt Date: 20101029
  Transmission Date: 20110411
  Serious: Yes (Other)
  Sender: FDA-Public Use
  Company Number: US-JNJFOC-20100901786

PATIENT
  Sex: Male
  Weight: 102.06 kg

DRUGS (5)
  1. REMICADE [Suspect]
     Indication: CROHN'S DISEASE
     Route: 042
  2. REMICADE [Suspect]
     Route: 042
  3. IRON [Concomitant]
  4. ASACOL [Concomitant]
     Indication: CROHN'S DISEASE
     Dosage: 3 TABS BID
  5. PRILOSEC [Concomitant]

REACTIONS (3)
  - DIARRHOEA [None]
  - FATIGUE [None]
  - WEIGHT INCREASED [None]
